FAERS Safety Report 7419768-5 (Version None)
Quarter: 2011Q1

REPORT INFORMATION
  Report Type: 
  Country: None (occurrence: None)
  Receive Date: 20110309
  Receipt Date: 20110309
  Transmission Date: 20110831
  Serious: Yes (Hospitalization)
  Sender: FDA-Public Use
  Company Number: None

PATIENT
  Age: 83 Year
  Sex: Female
  Weight: 63.5036 kg

DRUGS (1)
  1. COUMADIN [Suspect]

REACTIONS (6)
  - INSOMNIA [None]
  - BIPOLAR DISORDER [None]
  - CONTUSION [None]
  - BLOOD PRESSURE SYSTOLIC INCREASED [None]
  - HEART RATE INCREASED [None]
  - PAIN IN EXTREMITY [None]
